FAERS Safety Report 8186565-5 (Version None)
Quarter: 2012Q1

REPORT INFORMATION
  Report Type: 
  Country: None (occurrence: None)
  Receive Date: 20120306
  Receipt Date: 20120224
  Transmission Date: 20120608
  Serious: Yes (Other)
  Sender: FDA-Public Use
  Company Number: US-JNJFOC-20120213484

PATIENT
  Sex: Female
  Weight: 64.41 kg

DRUGS (12)
  1. LOPERAMIDE HCL [Concomitant]
     Indication: DIARRHOEA
     Route: 048
  2. REMICADE [Suspect]
     Indication: RHEUMATOID ARTHRITIS
     Route: 042
     Dates: start: 20110101, end: 20111205
  3. VITAMIN D [Concomitant]
     Indication: OSTEOPENIA
     Dosage: 3 TIMES A WEEK
     Route: 048
  4. VITAMIN B-12 [Concomitant]
     Indication: MEDICAL DIET
     Dosage: 1000 MCG
     Route: 030
  5. ASCORBIC ACID [Concomitant]
     Indication: MEDICAL DIET
     Route: 048
  6. REMICADE [Suspect]
     Indication: CROHN'S DISEASE
     Route: 042
     Dates: start: 20110101, end: 20111205
  7. HYDROCODONE BITARTRATE [Concomitant]
     Indication: PAIN
     Dosage: 750/500MG EVERY 6 HOURS
     Route: 048
  8. FOLIC ACID [Concomitant]
     Indication: MEDICAL DIET
     Route: 048
  9. VITAMIN E [Concomitant]
     Indication: MEDICAL DIET
     Route: 048
  10. ASACOL [Concomitant]
     Indication: CROHN'S DISEASE
     Route: 048
     Dates: start: 20110101
  11. NADOLOL [Concomitant]
     Indication: MITRAL VALVE PROLAPSE
     Route: 048
  12. ALPRAZOLAM [Concomitant]
     Indication: CROHN'S DISEASE
     Route: 048

REACTIONS (5)
  - MALAISE [None]
  - UTERINE MASS [None]
  - ABNORMAL LOSS OF WEIGHT [None]
  - NEUROPATHY PERIPHERAL [None]
  - GASTRIC DISORDER [None]
